FAERS Safety Report 21082751 (Version 1)
Quarter: 2022Q3

REPORT INFORMATION
  Report Type: Spontaneous
  Country: DE (occurrence: DE)
  Receive Date: 20220714
  Receipt Date: 20220714
  Transmission Date: 20221026
  Serious: Yes (Other)
  Sender: FDA-Public Use
  Company Number: DE-NOVARTISPH-NVSC2022DE110745

PATIENT
  Sex: Male

DRUGS (4)
  1. DOXORUBICIN [Suspect]
     Active Substance: DOXORUBICIN
     Indication: T-cell prolymphocytic leukaemia
     Dosage: UNK
     Route: 065
     Dates: start: 20211027
  2. PREDNISOLONE [Suspect]
     Active Substance: PREDNISOLONE
     Indication: T-cell prolymphocytic leukaemia
     Dosage: UNK
     Route: 065
     Dates: start: 20211027
  3. CYCLOPHOSPHAMIDE [Suspect]
     Active Substance: CYCLOPHOSPHAMIDE
     Indication: T-cell prolymphocytic leukaemia
     Dosage: UNK
     Route: 065
     Dates: start: 20211027
  4. ADCETRIS [Suspect]
     Active Substance: BRENTUXIMAB VEDOTIN
     Indication: T-cell prolymphocytic leukaemia
     Dosage: UNK
     Route: 065
     Dates: start: 20211027

REACTIONS (2)
  - Hyposplenism [Unknown]
  - Red blood cell morphology abnormal [Unknown]

NARRATIVE: CASE EVENT DATE: 20211201
